FAERS Safety Report 8054675-9 (Version None)
Quarter: 2012Q1

REPORT INFORMATION
  Report Type: 
  Country: None (occurrence: None)
  Receive Date: 20120119
  Receipt Date: 20120116
  Transmission Date: 20120608
  Serious: No
  Sender: FDA-Public Use
  Company Number: US-PFIZER INC-2012014535

PATIENT

DRUGS (1)
  1. NICOTROL [Suspect]

REACTIONS (1)
  - THROAT IRRITATION [None]
